FAERS Safety Report 8314216-5 (Version None)
Quarter: 2012Q2

REPORT INFORMATION
  Report Type: 
  Country: None (occurrence: None)
  Receive Date: 20120424
  Receipt Date: 20120417
  Transmission Date: 20120825
  Serious: Yes (Death, Life-Threatening)
  Sender: FDA-Public Use
  Company Number: WAES 1202USA01587

PATIENT
  Age: 78 Year
  Sex: Male

DRUGS (9)
  1. ANTEBATE [Concomitant]
  2. LANSOPRAZOLE [Concomitant]
  3. ZOLINZA [Suspect]
     Indication: MYCOSIS FUNGOIDES
     Dosage: 400 MG/DAILY, PO; 100 MG/DAILY, PO; 200 MG/DAILY, PO
     Route: 048
     Dates: start: 20111206, end: 20111215
  4. ZOLINZA [Suspect]
     Indication: MYCOSIS FUNGOIDES
     Dosage: 400 MG/DAILY, PO; 100 MG/DAILY, PO; 200 MG/DAILY, PO
     Route: 048
     Dates: start: 20111216, end: 20120101
  5. ZOLINZA [Suspect]
     Indication: MYCOSIS FUNGOIDES
     Dosage: 400 MG/DAILY, PO; 100 MG/DAILY, PO; 200 MG/DAILY, PO
     Route: 048
     Dates: start: 20111111, end: 20111115
  6. GLUFAST [Concomitant]
  7. OLOPATADINE HCL [Concomitant]
  8. LOXONIN [Concomitant]
  9. PREDNISOLONE [Concomitant]

REACTIONS (9)
  - RENAL DISORDER [None]
  - HAEMOGLOBIN DECREASED [None]
  - BLOOD ALBUMIN DECREASED [None]
  - PROTEIN TOTAL DECREASED [None]
  - HAEMATOCRIT DECREASED [None]
  - RED BLOOD CELL COUNT DECREASED [None]
  - BLOOD ALKALINE PHOSPHATASE INCREASED [None]
  - ACUTE RESPIRATORY FAILURE [None]
  - BLOOD CREATININE INCREASED [None]
